FAERS Safety Report 23719622 (Version 1)
Quarter: 2024Q2

REPORT INFORMATION
  Report Type: Spontaneous
  Country: US (occurrence: None)
  Receive Date: 20240408
  Receipt Date: 20240408
  Transmission Date: 20240716
  Serious: No
  Sender: FDA-Public Use
  Company Number: None

PATIENT
  Age: 54 Year
  Sex: Female

DRUGS (12)
  1. TACROLIMUS [Suspect]
     Active Substance: TACROLIMUS
     Indication: Renal transplant
     Dosage: FREQUENCY : TWICE A DAY;?
     Route: 048
     Dates: start: 20200305
  2. AMLODIPINE BESYLATE [Concomitant]
     Active Substance: AMLODIPINE BESYLATE
  3. ATORVASTATIN [Concomitant]
     Active Substance: ATORVASTATIN
  4. FREESTYLE LIBRE 2 READER DEVICE [Concomitant]
  5. METRONIDAZOLE [Concomitant]
     Active Substance: METRONIDAZOLE
  6. ONDANSETRON [Concomitant]
     Active Substance: ONDANSETRON
  7. OXYCODONE IMMEDIATE REL [Concomitant]
  8. PANTOPRAZOLE [Concomitant]
     Active Substance: PANTOPRAZOLE
  9. PREDNISONE [Concomitant]
     Active Substance: PREDNISONE
  10. PRODIGY NO CODING TEST STIPS 50^S [Concomitant]
  11. IMODIUM [Concomitant]
     Active Substance: LOPERAMIDE HYDROCHLORIDE
  12. TYLENOL [Concomitant]
     Active Substance: ACETAMINOPHEN

REACTIONS (2)
  - Skin cancer [None]
  - Therapy change [None]

NARRATIVE: CASE EVENT DATE: 20240301
